FAERS Safety Report 8877158 (Version 1)
Quarter: 2012Q4

REPORT INFORMATION
  Report Type: 
  Country: US (occurrence: US)
  Receive Date: 20121023
  Receipt Date: 20121023
  Transmission Date: 20130627
  Serious: No
  Sender: FDA-Public Use
  Company Number: US-AMGEN-USASP2012057331

PATIENT
  Age: 47 Year
  Sex: Female
  Weight: 102 kg

DRUGS (13)
  1. ENBREL [Suspect]
     Indication: RHEUMATOID ARTHRITIS
     Dosage: 50 mg, qwk
     Route: 058
  2. PLAQUENIL                          /00072602/ [Concomitant]
     Dosage: 200 mg, UNK
     Route: 048
  3. METHOTREXATE [Concomitant]
     Dosage: 2.5 mg, UNK
     Route: 048
  4. EFFEXOR [Concomitant]
     Dosage: 100 mg, UNK
     Route: 048
  5. METHADONET [Concomitant]
     Dosage: 10 mg, UNK
     Route: 048
  6. NEURONTIN [Concomitant]
     Dosage: 300 mg, UNK
     Route: 048
  7. ATIVAN [Concomitant]
     Dosage: 1 mg, UNK
     Route: 048
  8. TRAZODONE [Concomitant]
     Dosage: 50 mg, UNK
     Route: 048
  9. VITAMIN B [Concomitant]
     Dosage: 50 UNK, UNK
     Route: 048
  10. MAGNESIUM [Concomitant]
     Dosage: 300 mg, UNK
     Route: 048
  11. CALCIUM [Concomitant]
     Dosage: 500 UNK, UNK
     Route: 048
  12. CHROMIUM [Concomitant]
     Dosage: UNK
  13. FORTECEL [Concomitant]
     Dosage: UNK
     Route: 048

REACTIONS (3)
  - Nausea [Unknown]
  - Injection site pain [Unknown]
  - Stomatitis [Unknown]
